FAERS Safety Report 4749621-7 (Version None)
Quarter: 2005Q3

REPORT INFORMATION
  Report Type: 
  Country: None (occurrence: None)
  Receive Date: 20050822
  Receipt Date: 20050727
  Transmission Date: 20060218
  Serious: Yes (Hospitalization)
  Sender: FDA-Public Use
  Company Number: US-MERCK-0507USA04343

PATIENT
  Age: 61 Year
  Sex: Female

DRUGS (13)
  1. VIOXX [Suspect]
     Indication: ARTHRITIS
     Route: 048
     Dates: start: 20020408, end: 20040930
  2. GLUCOVANCE [Concomitant]
     Route: 065
  3. LOPROX [Concomitant]
     Route: 065
  4. PLENDIL [Concomitant]
     Route: 065
  5. PRINIVIL [Concomitant]
     Route: 065
  6. LIPITOR [Concomitant]
     Route: 065
  7. LISINOPRIL [Concomitant]
     Route: 065
  8. CALCIUM (UNSPECIFIED) [Concomitant]
     Route: 065
  9. LANTUS [Concomitant]
     Route: 065
  10. ASPIRIN [Concomitant]
     Route: 065
  11. VITAMINS (UNSPECIFIED) [Concomitant]
     Route: 065
  12. CLOTRIMAZOLE [Concomitant]
     Route: 065
  13. ATENOLOL [Concomitant]
     Route: 065

REACTIONS (7)
  - ACUTE CORONARY SYNDROME [None]
  - CELLULITIS [None]
  - CEREBROVASCULAR ACCIDENT [None]
  - CHEST PAIN [None]
  - CORONARY ARTERY DISEASE [None]
  - HAEMATOMA INFECTION [None]
  - LEUKOCYTOSIS [None]
